FAERS Safety Report 26139316 (Version 1)
Quarter: 2025Q4

REPORT INFORMATION
  Report Type: Spontaneous
  Country: US (occurrence: US)
  Receive Date: 20251210
  Receipt Date: 20251210
  Transmission Date: 20260118
  Serious: Yes (Hospitalization, Other)
  Sender: CIPLA
  Company Number: US-MLMSERVICE-20251121-PI721937-00177-1

PATIENT

DRUGS (1)
  1. HYDROCORTISONE [Suspect]
     Active Substance: HYDROCORTISONE
     Indication: Adrenal insufficiency
     Dosage: UNK (STRESS DOSE)
     Route: 042

REACTIONS (2)
  - Diabetes insipidus [Recovered/Resolved]
  - Unmasking of previously unidentified disease [Recovered/Resolved]
